FAERS Safety Report 20444013 (Version 1)
Quarter: 2022Q1

REPORT INFORMATION
  Report Type: Spontaneous
  Country: US (occurrence: None)
  Receive Date: 20220207
  Receipt Date: 20220207
  Transmission Date: 20220423
  Serious: Yes (Hospitalization)
  Sender: FDA-Public Use
  Company Number: None

PATIENT
  Age: 20 Year
  Sex: Male
  Weight: 58 kg

DRUGS (6)
  1. PAXLOVID [Suspect]
     Active Substance: NIRMATRELVIR\RITONAVIR
     Indication: COVID-19
     Dosage: FREQUENCY : TWICE A DAY;?
     Route: 048
     Dates: start: 20220130, end: 20220203
  2. VINCRISTINE [Suspect]
     Active Substance: VINCRISTINE
     Indication: Ewing^s sarcoma metastatic
     Dosage: OTHER FREQUENCY : ONCE;?
     Route: 042
     Dates: start: 20220127, end: 20220127
  3. DOXORUBICIN [Concomitant]
     Active Substance: DOXORUBICIN
     Dates: start: 20220127, end: 20220128
  4. CYCLOPHOSPHAMIDE [Concomitant]
     Active Substance: CYCLOPHOSPHAMIDE
     Dates: start: 20220127, end: 20220128
  5. APREPITANT [Concomitant]
     Active Substance: APREPITANT
     Dates: start: 20220127, end: 20220128
  6. GRANISETRON [Concomitant]
     Active Substance: GRANISETRON
     Dates: start: 20220127, end: 20220128

REACTIONS (12)
  - Myelosuppression [None]
  - Platelet transfusion [None]
  - Nausea [None]
  - Vomiting [None]
  - Infusion related reaction [None]
  - Fatigue [None]
  - Packed red blood cell transfusion [None]
  - Drug interaction [None]
  - Epistaxis [None]
  - Thrombocytopenia [None]
  - Transfusion [None]
  - Haemoglobin decreased [None]

NARRATIVE: CASE EVENT DATE: 20220203
